FAERS Safety Report 6903559-5 (Version None)
Quarter: 2010Q3

REPORT INFORMATION
  Report Type: 
  Country: None (occurrence: None)
  Receive Date: 20100708
  Receipt Date: 20100212
  Transmission Date: 20110219
  Serious: Yes (Other)
  Sender: FDA-Public Use
  Company Number: 2010020709

PATIENT
  Age: 58 Year
  Sex: Female

DRUGS (1)
  1. CHANTIX [Suspect]
     Dates: start: 20090201

REACTIONS (1)
  - SUICIDAL IDEATION [None]
